FAERS Safety Report 14342252 (Version 1)
Quarter: 2018Q1

REPORT INFORMATION
  Report Type: Spontaneous
  Country: US (occurrence: US)
  Receive Date: 20180102
  Receipt Date: 20180102
  Transmission Date: 20180509
  Serious: No
  Sender: FDA-Public Use
  Company Number: US-TEVA-723418USA

PATIENT
  Sex: Female

DRUGS (1)
  1. DULOXETINE DR [Suspect]
     Active Substance: DULOXETINE

REACTIONS (4)
  - Product colour issue [Unknown]
  - Product size issue [Unknown]
  - Diarrhoea [Unknown]
  - Nausea [Unknown]
